FAERS Safety Report 10625175 (Version 1)
Quarter: 2014Q4

REPORT INFORMATION
  Report Type: Spontaneous
  Country: US (occurrence: None)
  Receive Date: 20141202
  Receipt Date: 20141202
  Transmission Date: 20150529
  Serious: Yes (Other)
  Sender: FDA-Public Use
  Company Number: 2014-US-015554

PATIENT
  Age: 39 Year
  Sex: Female
  Weight: 93.4 kg

DRUGS (9)
  1. DIPAN 9 (CONTAINS PANCREATIN) (PANCREATIN) [Concomitant]
  2. ALAVERT (LORATADINE) [Concomitant]
  3. BUMETANIDE. [Concomitant]
     Active Substance: BUMETANIDE
  4. XYREM [Suspect]
     Active Substance: SODIUM OXYBATE
     Indication: NARCOLEPSY
     Route: 048
     Dates: start: 20141110, end: 201411
  5. BETAINE HCL + PEPSIN (BETAINE HYDROCHLORIDE, PEPSIN) [Concomitant]
  6. GABAPENTIN (GABAPENTIN) [Concomitant]
     Active Substance: GABAPENTIN
  7. HUMALOG [Concomitant]
     Active Substance: INSULIN LISPRO
  8. KLOR-CON (POTASSIUM CHLORIDE) [Concomitant]
  9. NUVIGIL [Concomitant]
     Active Substance: ARMODAFINIL

REACTIONS (4)
  - Muscle spasms [None]
  - Feeling abnormal [None]
  - Dizziness [None]
  - Blood glucose decreased [None]

NARRATIVE: CASE EVENT DATE: 20141121
